FAERS Safety Report 11271149 (Version 3)
Quarter: 2016Q3

REPORT INFORMATION
  Report Type: Spontaneous
  Country: RU (occurrence: RU)
  Receive Date: 20150714
  Receipt Date: 20160927
  Transmission Date: 20161109
  Serious: Yes (Other)
  Sender: FDA-Public Use
  Company Number: RU-ASTRAZENECA-2015SE65891

PATIENT
  Age: 22913 Day
  Sex: Female

DRUGS (5)
  1. CARDIOMAGNYLI [Concomitant]
     Indication: HYPERTENSION
     Route: 048
     Dates: start: 201202
  2. VEROPAMYLI [Concomitant]
     Indication: HYPERTENSION
     Route: 048
     Dates: start: 20150518
  3. BEROTEC (FENOTEROL) [Concomitant]
     Indication: ASTHMA
     Dosage: 100.0MG AS REQUIRED
     Route: 055
  4. SYMBICORT [Suspect]
     Active Substance: BUDESONIDE\FORMOTEROL FUMARATE DIHYDRATE
     Indication: ASTHMA
     Route: 055
     Dates: start: 200703
  5. VENTOLINI [Concomitant]
     Active Substance: ALBUTEROL
     Indication: ASTHMA
     Dosage: 100.0MG AS REQUIRED
     Route: 055
     Dates: start: 20150623

REACTIONS (1)
  - Asthma [Recovered/Resolved]

NARRATIVE: CASE EVENT DATE: 20150704
